FAERS Safety Report 6518984-4 (Version None)
Quarter: 2009Q4

REPORT INFORMATION
  Report Type: 
  Country: None (occurrence: None)
  Receive Date: 20091228
  Receipt Date: 20091217
  Transmission Date: 20100525
  Serious: Yes (Other)
  Sender: FDA-Public Use
  Company Number: JP-MILLENNIUM PHARMACEUTICALS, INC.-2009-03641

PATIENT

DRUGS (8)
  1. VELCADE [Suspect]
     Indication: MULTIPLE MYELOMA
     Dosage: 1.3 MG/M2, CYCLIC
     Route: 042
     Dates: start: 20070423, end: 20070423
  2. VELCADE [Suspect]
     Dosage: 1.9 MG, CYCLIC
     Route: 042
     Dates: start: 20070423, end: 20080118
  3. DEXAMETHASONE [Concomitant]
     Indication: MULTIPLE MYELOMA
     Dosage: 20 MG, UNK
     Route: 042
     Dates: start: 20070423, end: 20080119
  4. DEXAMETHASONE [Concomitant]
     Dosage: 20 MG, UNK
     Route: 048
     Dates: start: 20070801, end: 20080119
  5. DEXAMETHASONE [Concomitant]
     Dosage: 4 MG, UNK
     Route: 042
     Dates: start: 20070514, end: 20070518
  6. BACTRAMIN [Concomitant]
     Indication: PROPHYLAXIS
     Dosage: 1 DF, UNK
     Route: 048
     Dates: start: 20070423
  7. BIOFERMIN [Concomitant]
     Indication: PROPHYLAXIS
     Dosage: 3 DF, UNK
     Route: 048
     Dates: start: 20070423
  8. CALCIUM LACTATE [Concomitant]
     Indication: PROPHYLAXIS
     Dosage: 3 G, UNK
     Route: 048
     Dates: start: 20070423

REACTIONS (1)
  - HYPERAMYLASAEMIA [None]
